FAERS Safety Report 11761157 (Version 1)
Quarter: 2015Q4

REPORT INFORMATION
  Report Type: Spontaneous
  Country: GB (occurrence: GB)
  Receive Date: 20151120
  Receipt Date: 20151120
  Transmission Date: 20160304
  Serious: Yes (Hospitalization)
  Sender: FDA-Public Use
  Company Number: GB-ABBVIE-15K-167-1501988-00

PATIENT
  Age: 24 Year
  Sex: Male

DRUGS (1)
  1. HUMIRA [Suspect]
     Active Substance: ADALIMUMAB
     Indication: CROHN^S DISEASE
     Route: 058
     Dates: end: 201510

REACTIONS (3)
  - Gait disturbance [Recovering/Resolving]
  - Peroneal nerve palsy [Recovering/Resolving]
  - Demyelination [Recovering/Resolving]

NARRATIVE: CASE EVENT DATE: 201510
